FAERS Safety Report 21233951 (Version 3)
Quarter: 2022Q4

REPORT INFORMATION
  Report Type: Spontaneous
  Country: US (occurrence: US)
  Receive Date: 20220819
  Receipt Date: 20221128
  Transmission Date: 20230113
  Serious: No
  Sender: FDA-Public Use
  Company Number: US-BAYER-2022A113925

PATIENT
  Age: 68 Year
  Sex: Male

DRUGS (1)
  1. VITRAKVI [Suspect]
     Active Substance: LAROTRECTINIB
     Indication: Sarcoma
     Dosage: 100 MG
     Dates: start: 202202

REACTIONS (3)
  - Blood pressure increased [None]
  - Dysgeusia [Recovered/Resolved]
  - Product dosage form issue [None]
